FAERS Safety Report 21098041 (Version 1)
Quarter: 2022Q3

REPORT INFORMATION
  Report Type: Report from Study
  Country: CA (occurrence: CA)
  Receive Date: 20220719
  Receipt Date: 20220719
  Transmission Date: 20221027
  Serious: Yes (Death, Disabling, Other)
  Sender: FDA-Public Use
  Company Number: CA-GILEAD-2022-0588933

PATIENT
  Sex: Male
  Weight: 80 kg

DRUGS (1)
  1. TECARTUS [Suspect]
     Active Substance: BREXUCABTAGENE AUTOLEUCEL
     Indication: Mantle cell lymphoma
     Dosage: UNK
     Route: 042
     Dates: start: 20210823, end: 20210823

REACTIONS (2)
  - Leukoencephalopathy [Fatal]
  - Paraesthesia [Fatal]

NARRATIVE: CASE EVENT DATE: 20220303
